FAERS Safety Report 5736555-4 (Version None)
Quarter: 2008Q2

REPORT INFORMATION
  Report Type: 
  Country: None (occurrence: None)
  Receive Date: 20080508
  Receipt Date: 20080501
  Transmission Date: 20081010
  Serious: Yes (Other)
  Sender: FDA-Public Use
  Company Number: 2008011477

PATIENT
  Age: 52 Year
  Sex: Female
  Weight: 45.3597 kg

DRUGS (1)
  1. LISTERINE TOOTH DEFENSE (SODIUM FLUORIDE) [Suspect]
     Indication: DENTAL DISORDER PROPHYLAXIS
     Dosage: HALF A CAPFUL TWICE, ORAL
     Route: 048
     Dates: start: 20080430, end: 20080501

REACTIONS (4)
  - BLISTER [None]
  - ORAL DISCOMFORT [None]
  - ORAL PAIN [None]
  - STOMATITIS [None]
